FAERS Safety Report 14980927 (Version 2)
Quarter: 2018Q3

REPORT INFORMATION
  Report Type: Spontaneous
  Country: US (occurrence: US)
  Receive Date: 20180606
  Receipt Date: 20180914
  Transmission Date: 20181010
  Serious: Yes (Hospitalization)
  Sender: FDA-Public Use
  Company Number: US-DSJP-DSU-2017-149283

PATIENT

DRUGS (1)
  1. BENICAR HCT [Suspect]
     Active Substance: HYDROCHLOROTHIAZIDE\OLMESARTAN MEDOXOMIL
     Indication: PRODUCT USED FOR UNKNOWN INDICATION
     Dosage: 40?12.5 MG, QD
     Route: 048
     Dates: end: 20170817

REACTIONS (7)
  - Gastrooesophageal reflux disease [Recovering/Resolving]
  - Diarrhoea [Recovered/Resolved]
  - Weight decreased [Recovered/Resolved]
  - Hiatus hernia [Not Recovered/Not Resolved]
  - Gastritis [Not Recovered/Not Resolved]
  - Oesophageal stenosis [Unknown]
  - Diverticulum [Unknown]

NARRATIVE: CASE EVENT DATE: 20160901
